FAERS Safety Report 24362013 (Version 1)
Quarter: 2024Q3

REPORT INFORMATION
  Report Type: Spontaneous
  Country: JP (occurrence: JP)
  Receive Date: 20240925
  Receipt Date: 20240925
  Transmission Date: 20241017
  Serious: Yes (Hospitalization, Other)
  Sender: UNITED THERAPEUTICS
  Company Number: JP-UNITED THERAPEUTICS-UNT-2024-029212

PATIENT
  Age: 25 Year
  Sex: Female
  Weight: 42 kg

DRUGS (2)
  1. REMODULIN [Suspect]
     Active Substance: TREPROSTINIL
     Indication: Heritable pulmonary arterial hypertension
     Dosage: 0.220 ?G/KG, CONTINUING
     Route: 041
  2. REMODULIN [Suspect]
     Active Substance: TREPROSTINIL
     Dosage: UNK, CONTINUING
     Route: 041

REACTIONS (5)
  - Cholecystitis acute [Recovered/Resolved]
  - Right ventricular enlargement [Unknown]
  - Dyspnoea exertional [Unknown]
  - Discomfort [Recovered/Resolved]
  - Procedural pain [Unknown]
